FAERS Safety Report 20343543 (Version 1)
Quarter: 2022Q1

REPORT INFORMATION
  Report Type: Spontaneous
  Country: US (occurrence: None)
  Receive Date: 20220118
  Receipt Date: 20220118
  Transmission Date: 20220423
  Serious: No
  Sender: FDA-Public Use
  Company Number: 2022A018433

PATIENT
  Sex: Male

DRUGS (1)
  1. SYMBICORT [Suspect]
     Active Substance: BUDESONIDE\FORMOTEROL FUMARATE DIHYDRATE
     Indication: Asthma
     Dosage: 2 INHALATIONS TWICE A DAY
     Route: 055

REACTIONS (4)
  - Memory impairment [Unknown]
  - Intentional product misuse [Unknown]
  - Device use issue [Unknown]
  - Device malfunction [Unknown]
